FAERS Safety Report 4753159-0 (Version None)
Quarter: 2005Q3

REPORT INFORMATION
  Report Type: 
  Country: None (occurrence: None)
  Receive Date: 20050823
  Receipt Date: 20050810
  Transmission Date: 20060218
  Serious: Yes (Hospitalization, Other)
  Sender: FDA-Public Use
  Company Number: 25800

PATIENT
  Age: 80 Year
  Sex: Male

DRUGS (6)
  1. ALDARA [Suspect]
     Indication: ACTINIC KERATOSIS
     Dosage: (1 SATCHET, 3 IN 1 WEEK(S), TOPICAL
     Route: 061
     Dates: start: 20041013, end: 20041104
  2. NIACIN [Suspect]
     Dosage: ORAL
     Route: 048
     Dates: start: 20041021, end: 20041109
  3. HYDROCHLOROTHIAZIDE [Suspect]
     Indication: HYPERTENSION
     Dates: end: 20041208
  4. ASPIRIN [Suspect]
     Dates: end: 20041208
  5. VITAMIN E [Suspect]
     Dates: end: 20041208
  6. ARTIFICIAL TEARS [Concomitant]

REACTIONS (5)
  - DEHYDRATION [None]
  - GENERALISED ERYTHEMA [None]
  - OEDEMA PERIPHERAL [None]
  - RASH GENERALISED [None]
  - SKIN EXFOLIATION [None]
